FAERS Safety Report 10062944 (Version 1)
Quarter: 2014Q2

REPORT INFORMATION
  Report Type: Spontaneous
  Country: GB (occurrence: GB)
  Receive Date: 20140407
  Receipt Date: 20140407
  Transmission Date: 20141212
  Serious: Yes (Congenital Anomaly)
  Sender: FDA-Public Use
  Company Number: GB-ACTAVIS-2014-06344

PATIENT
  Sex: Female

DRUGS (7)
  1. ALENDRONIC ACID (UNKNOWN) [Suspect]
     Indication: PRODUCT USED FOR UNKNOWN INDICATION
     Dosage: UNK
     Route: 064
  2. FEXOFENADINE (UNKNOWN) [Suspect]
     Indication: ASTHMA
     Dosage: 180 MG, UNKNOWN
     Route: 064
  3. MONTELUKAST (UNKNOWN) [Suspect]
     Indication: PRODUCT USED FOR UNKNOWN INDICATION
     Dosage: 10 MG, DAILY
     Route: 064
  4. THEOPHYLLINE (UNKNOWN) [Suspect]
     Indication: ASTHMA
     Dosage: 500 MG, UNKNOWN
     Route: 064
  5. SPIRIVA [Suspect]
     Indication: ASTHMA
     Dosage: UNK
     Route: 064
  6. SYMBICORT [Suspect]
     Indication: ASTHMA
     Dosage: UNK
     Route: 064
  7. XOLAIR [Suspect]
     Indication: ASTHMA
     Dosage: 600 MG, UNKNOWN
     Route: 064

REACTIONS (2)
  - Hearing impaired [Unknown]
  - Foetal exposure during pregnancy [Unknown]
